FAERS Safety Report 7164001-5 (Version None)
Quarter: 2010Q4

REPORT INFORMATION
  Report Type: 
  Country: None (occurrence: None)
  Receive Date: 20101215
  Receipt Date: 20101210
  Transmission Date: 20110411
  Serious: Yes (Death, Hospitalization)
  Sender: FDA-Public Use
  Company Number: A0882749A

PATIENT
  Age: 92 Year
  Sex: Male
  Weight: 73.2 kg

DRUGS (9)
  1. ADVAIR [Suspect]
     Indication: CHRONIC OBSTRUCTIVE PULMONARY DISEASE
     Dosage: 1PUFF TWICE PER DAY
     Route: 055
     Dates: start: 20060101
  2. CALAN [Concomitant]
     Dosage: 240MG PER DAY
     Route: 048
  3. XALATAN [Concomitant]
     Dosage: 1DROP PER DAY
     Route: 047
  4. TIMOPTIC [Concomitant]
     Dosage: 1DROP PER DAY
     Route: 047
  5. MULTI-VITAMINS [Concomitant]
  6. OSCAL [Concomitant]
  7. TUSSIN [Concomitant]
     Route: 048
  8. LORAZEPAM [Concomitant]
  9. FORTICAL [Concomitant]
     Dosage: 1SPR PER DAY

REACTIONS (8)
  - CHEST DISCOMFORT [None]
  - CHEST PAIN [None]
  - CHRONIC OBSTRUCTIVE PULMONARY DISEASE [None]
  - COLLAPSE OF LUNG [None]
  - EXPIRED DRUG ADMINISTERED [None]
  - PNEUMONIA [None]
  - PYREXIA [None]
  - TONGUE DISORDER [None]
